FAERS Safety Report 9115832 (Version 1)
Quarter: 2013Q1

REPORT INFORMATION
  Report Type: Spontaneous
  Country: US (occurrence: US)
  Receive Date: 20130224
  Receipt Date: 20130224
  Transmission Date: 20140127
  Serious: Yes (Other)
  Sender: FDA-Public Use
  Company Number: US-009507513-1302USA010228

PATIENT
  Sex: Female

DRUGS (1)
  1. JANUVIA [Suspect]

REACTIONS (1)
  - Pancreatitis [Unknown]
